FAERS Safety Report 8932644 (Version 1)
Quarter: 2012Q4

REPORT INFORMATION
  Report Type: 
  Country: GB (occurrence: GB)
  Receive Date: 20121128
  Receipt Date: 20121128
  Transmission Date: 20130627
  Serious: Yes (Hospitalization)
  Sender: FDA-Public Use
  Company Number: GB-009507513-1211GBR009825

PATIENT

DRUGS (1)
  1. SINEMET-PLUS [Suspect]
     Route: 048

REACTIONS (3)
  - Hospitalisation [Unknown]
  - Wrong technique in drug usage process [Unknown]
  - Product solubility abnormal [None]
